FAERS Safety Report 15054103 (Version 2)
Quarter: 2018Q4

REPORT INFORMATION
  Report Type: Spontaneous
  Country: US (occurrence: US)
  Receive Date: 20180622
  Receipt Date: 20181215
  Transmission Date: 20190204
  Serious: Yes (Disabling, Other)
  Sender: FDA-Public Use
  Company Number: US-OTSUKA-2018_015734

PATIENT
  Sex: Female

DRUGS (15)
  1. ABILIFY [Suspect]
     Active Substance: ARIPIPRAZOLE
     Indication: POST-TRAUMATIC STRESS DISORDER
  2. LAMOTRIGINE. [Concomitant]
     Active Substance: LAMOTRIGINE
     Indication: PRODUCT USED FOR UNKNOWN INDICATION
     Dosage: 100 MG, QD
     Route: 065
  3. SERTRALINE [Concomitant]
     Active Substance: SERTRALINE HYDROCHLORIDE
     Indication: PRODUCT USED FOR UNKNOWN INDICATION
     Dosage: 100 MG, QD (IN MORNING)
     Route: 048
  4. ABILIFY [Suspect]
     Active Substance: ARIPIPRAZOLE
     Indication: AGITATION
     Dosage: 7.5 MG, QD
     Route: 048
  5. ZANAFLEX [Concomitant]
     Active Substance: TIZANIDINE HYDROCHLORIDE
     Indication: PRODUCT USED FOR UNKNOWN INDICATION
     Dosage: 1 DF, EVERY 6HRS AS NEEDED)
     Route: 048
  6. CAPSAICIN. [Concomitant]
     Active Substance: CAPSAICIN
     Indication: NECK PAIN
     Dosage: UNK (FOUR TIMES A DAY)
     Route: 061
  7. NAPROXEN. [Concomitant]
     Active Substance: NAPROXEN
     Indication: INFLAMMATION
     Dosage: 1 DF, BID
     Route: 048
  8. ABILIFY [Suspect]
     Active Substance: ARIPIPRAZOLE
     Indication: IRRITABILITY
     Dosage: 10 MG, QD
     Route: 048
  9. ABILIFY [Suspect]
     Active Substance: ARIPIPRAZOLE
     Indication: PERSONALITY DISORDER
     Dosage: 15 MG, QD
     Route: 048
     Dates: end: 201707
  10. NAPROXEN. [Concomitant]
     Active Substance: NAPROXEN
     Indication: PAIN
  11. ABILIFY [Suspect]
     Active Substance: ARIPIPRAZOLE
     Indication: BIPOLAR DISORDER
     Dosage: 5 MG, QD
     Route: 048
     Dates: start: 20050405
  12. QUETIAPINE. [Concomitant]
     Active Substance: QUETIAPINE
     Indication: PRODUCT USED FOR UNKNOWN INDICATION
     Dosage: 25 MG, AT BED TIME AS NEEDED)
     Route: 065
  13. CYCLOBENZAPRINE HCL [Concomitant]
     Active Substance: CYCLOBENZAPRINE HYDROCHLORIDE
     Indication: MUSCLE SPASMS
     Dosage: 1 DF, TID
     Route: 048
  14. MELATONIN [Concomitant]
     Active Substance: MELATONIN
     Indication: SLEEP DISORDER
     Dosage: 1 DF, QD (AT BED TIME)
     Route: 048
  15. MENTHOL W/METHYL SALICYLATE [Concomitant]
     Active Substance: MENTHOL\METHYL SALICYLATE
     Indication: PAIN
     Dosage: UNK, TID
     Route: 061

REACTIONS (38)
  - Disability [Unknown]
  - Productive cough [Unknown]
  - Emotional distress [Unknown]
  - Economic problem [Unknown]
  - Chills [Unknown]
  - Loss of employment [Unknown]
  - Physical disability [Unknown]
  - Obsessive-compulsive disorder [Recovered/Resolved]
  - Fear [Unknown]
  - Hypoaesthesia [Unknown]
  - Influenza like illness [Unknown]
  - Aggression [Unknown]
  - Compulsive shopping [Recovered/Resolved]
  - Anhedonia [Unknown]
  - Mental impairment [Unknown]
  - Anxiety [Unknown]
  - Erythema [Unknown]
  - Musculoskeletal pain [Unknown]
  - Dyspnoea [Unknown]
  - Muscle tightness [Unknown]
  - Pain [Unknown]
  - Alcohol abuse [Unknown]
  - Imprisonment [Unknown]
  - Product use in unapproved indication [Unknown]
  - Suicide attempt [Recovered/Resolved]
  - Suicidal ideation [Recovered/Resolved]
  - Injury [Unknown]
  - Condition aggravated [Unknown]
  - Malaise [Unknown]
  - Theft [Unknown]
  - Impulse-control disorder [Unknown]
  - Social problem [Unknown]
  - Sinus congestion [Unknown]
  - Blood cholesterol increased [Unknown]
  - Shoplifting [Unknown]
  - Gambling disorder [Not Recovered/Not Resolved]
  - Legal problem [Unknown]
  - Product dose omission [Unknown]

NARRATIVE: CASE EVENT DATE: 2005
